FAERS Safety Report 4377294-4 (Version None)
Quarter: 2004Q2

REPORT INFORMATION
  Report Type: 
  Country: None (occurrence: None)
  Receive Date: 20040609
  Receipt Date: 20040305
  Transmission Date: 20050107
  Serious: No
  Sender: FDA-Public Use
  Company Number: 2004202985US

PATIENT
  Age: 79 Year
  Sex: Male
  Weight: 59 kg

DRUGS (4)
  1. BEXTRA [Suspect]
     Indication: ARTHRITIS
     Dosage: 10 MG, QD
     Dates: start: 20040303
  2. GLYBURIDE [Concomitant]
  3. DOXAZOSIN (DOXAZOSIN) [Concomitant]
  4. VITAMIN B-12 [Concomitant]

REACTIONS (1)
  - EYE HAEMORRHAGE [None]
